FAERS Safety Report 5989753-9 (Version None)
Quarter: 2008Q4

REPORT INFORMATION
  Report Type: 
  Country: None (occurrence: None)
  Receive Date: 20081209
  Receipt Date: 20081127
  Transmission Date: 20090506
  Serious: Yes (Life-Threatening, Hospitalization)
  Sender: FDA-Public Use
  Company Number: FABR-1000491

PATIENT
  Age: 18 Year
  Sex: Male
  Weight: 37 kg

DRUGS (1)
  1. FABRAZYME [Suspect]
     Indication: FABRY'S DISEASE
     Dosage: 0.95 MG/KG, Q2W, INTRAVENOUS
     Route: 042
     Dates: start: 20060420

REACTIONS (9)
  - CARDIAC FAILURE CONGESTIVE [None]
  - CATHETER SITE INFECTION [None]
  - HEADACHE [None]
  - HYPERCHOLESTEROLAEMIA [None]
  - HYPERTENSION [None]
  - MIGRAINE [None]
  - PAIN IN EXTREMITY [None]
  - PERICARDIAL EFFUSION [None]
  - PERITONITIS [None]
